FAERS Safety Report 15617387 (Version 1)
Quarter: 2018Q4

REPORT INFORMATION
  Report Type: Spontaneous
  Country: US (occurrence: US)
  Receive Date: 20181114
  Receipt Date: 20181114
  Transmission Date: 20190205
  Serious: No
  Sender: FDA-Public Use
  Company Number: None

PATIENT
  Age: 54 Year
  Sex: Female
  Weight: 94.95 kg

DRUGS (8)
  1. TRAMADOL HCL 50 MG [Suspect]
     Active Substance: TRAMADOL HYDROCHLORIDE
     Indication: PAIN
     Dosage: ?          QUANTITY:1 TABLET(S);?
     Route: 048
     Dates: start: 20181107, end: 20181109
  2. LANSOPRAZOLE. [Concomitant]
     Active Substance: LANSOPRAZOLE
  3. CENTRUM SILVER FOR WOMEN 5-0+VITAMIN [Concomitant]
  4. RANITIDINE. [Concomitant]
     Active Substance: RANITIDINE
  5. ZIPSOR [Concomitant]
     Active Substance: DICLOFENAC POTASSIUM
  6. VITAMIN B12 [Concomitant]
     Active Substance: CYANOCOBALAMIN
  7. ACETAMINOPHEN. [Concomitant]
     Active Substance: ACETAMINOPHEN
  8. LORATADINE. [Concomitant]
     Active Substance: LORATADINE

REACTIONS (12)
  - Oropharyngeal pain [None]
  - Arthralgia [None]
  - Nasopharyngitis [None]
  - Chromaturia [None]
  - Ear pain [None]
  - Musculoskeletal stiffness [None]
  - Headache [None]
  - Faeces discoloured [None]
  - Influenza like illness [None]
  - Insomnia [None]
  - Productive cough [None]
  - Paraesthesia [None]

NARRATIVE: CASE EVENT DATE: 20181107
